FAERS Safety Report 5746146-7 (Version None)
Quarter: 2008Q2

REPORT INFORMATION
  Report Type: 
  Country: None (occurrence: None)
  Receive Date: 20080522
  Receipt Date: 20080516
  Transmission Date: 20081010
  Serious: Yes (Other)
  Sender: FDA-Public Use
  Company Number: US-BAYER-200811953BCC

PATIENT
  Sex: Female

DRUGS (3)
  1. BAYER EXTRA STRENGTH BACK AND BODY [Suspect]
     Indication: ANALGESIA
     Route: 048
     Dates: start: 20060101
  2. ASPIRIN [Suspect]
     Indication: PROPHYLAXIS
     Route: 048
     Dates: start: 20060101
  3. FOSAMAX [Concomitant]

REACTIONS (1)
  - BREAST CANCER IN SITU [None]
